FAERS Safety Report 4437199-7 (Version None)
Quarter: 2004Q3

REPORT INFORMATION
  Report Type: 
  Country: None (occurrence: None)
  Receive Date: 20040726
  Receipt Date: 20040304
  Transmission Date: 20050211
  Serious: No
  Sender: FDA-Public Use
  Company Number: USA040360924

PATIENT
  Age: 36 Year
  Sex: Female
  Weight: 48 kg

DRUGS (8)
  1. FORTEO [Suspect]
     Indication: OSTEOPOROSIS
     Dosage: 20 UG/L DAY
     Dates: start: 20040101
  2. REMICADE [Concomitant]
  3. ELAVIL [Concomitant]
  4. VICODIN ES [Concomitant]
  5. XANAX [Concomitant]
  6. VIACTIV [Concomitant]
  7. METHOTREXATE [Concomitant]
  8. TEMAZEPAM [Concomitant]

REACTIONS (4)
  - HOT FLUSH [None]
  - HYPERHIDROSIS [None]
  - INCREASED TENDENCY TO BRUISE [None]
  - INJECTION SITE HAEMORRHAGE [None]
